FAERS Safety Report 7737756-6 (Version None)
Quarter: 2011Q3

REPORT INFORMATION
  Report Type: 
  Country: None (occurrence: None)
  Receive Date: 20110908
  Receipt Date: 20110830
  Transmission Date: 20111222
  Serious: Yes (Other)
  Sender: FDA-Public Use
  Company Number: DE-UCBSA-040392

PATIENT
  Age: 72 Year
  Sex: Male

DRUGS (3)
  1. KEPPRA [Suspect]
     Indication: PARTIAL SEIZURES
     Dosage: DOSE: 1000 MG - 0 - 1000 MG
  2. UNSPECIFIED BETA-SYMPATHOMIMETIC AGENT [Concomitant]
     Indication: ASTHMA
  3. KEPPRA [Suspect]
     Dosage: DOSE: 500 MG - 0 - 1000 MG

REACTIONS (4)
  - ASTHMA [None]
  - MEMORY IMPAIRMENT [None]
  - APHASIA [None]
  - BALANCE DISORDER [None]
